FAERS Safety Report 24955070 (Version 1)
Quarter: 2025Q1

REPORT INFORMATION
  Report Type: Spontaneous
  Country: US (occurrence: None)
  Receive Date: 20250210
  Receipt Date: 20250210
  Transmission Date: 20250408
  Serious: Yes (Disabling)
  Sender: FDA-CTU
  Company Number: None

PATIENT
  Age: 62 Year
  Sex: Female
  Weight: 77.4 kg

DRUGS (3)
  1. COMPOUND BENZOIN TINCTURE [Suspect]
     Active Substance: BENZOIN RESIN
     Indication: Antibiotic prophylaxis
     Dates: start: 20250129, end: 20250129
  2. SERTRALINE [Concomitant]
     Active Substance: SERTRALINE HYDROCHLORIDE
  3. TOPIRAMATE [Concomitant]
     Active Substance: TOPIRAMATE

REACTIONS (3)
  - Rash vesicular [None]
  - Pruritus [None]
  - Herpes zoster [None]

NARRATIVE: CASE EVENT DATE: 20250204
